FAERS Safety Report 14375691 (Version 2)
Quarter: 2018Q3

REPORT INFORMATION
  Report Type: Spontaneous
  Country: DE (occurrence: DE)
  Receive Date: 20180111
  Receipt Date: 20180717
  Transmission Date: 20181010
  Serious: Yes (Other)
  Sender: FDA-Public Use
  Company Number: DE-MYLANLABS-2018M1002000

PATIENT
  Age: 20 Year
  Sex: Male

DRUGS (3)
  1. SERTRALINE [Suspect]
     Active Substance: SERTRALINE HYDROCHLORIDE
     Indication: MENTAL DISORDER
     Dosage: 100 MG, QD
  2. SERTRALINE [Suspect]
     Active Substance: SERTRALINE HYDROCHLORIDE
     Dosage: 50 MG, QD
     Route: 065
  3. ZIPRASIDONE. [Interacting]
     Active Substance: ZIPRASIDONE
     Indication: MENTAL DISORDER
     Dosage: 60 MG, QD

REACTIONS (11)
  - Product use in unapproved indication [Unknown]
  - Hallucination, auditory [Recovered/Resolved]
  - Muscle spasms [Recovered/Resolved]
  - Ventricular tachycardia [Recovered/Resolved]
  - Disturbance in attention [Recovered/Resolved]
  - Depressive symptom [Unknown]
  - Serotonin syndrome [Recovered/Resolved]
  - Hyperhidrosis [Recovered/Resolved]
  - Agitation [Recovered/Resolved]
  - Nausea [Recovered/Resolved]
  - Drug interaction [Unknown]
